FAERS Safety Report 7124365-5 (Version None)
Quarter: 2010Q4

REPORT INFORMATION
  Report Type: 
  Country: None (occurrence: None)
  Receive Date: 20101126
  Receipt Date: 20101123
  Transmission Date: 20110411
  Serious: Yes (Death, Hospitalization)
  Sender: FDA-Public Use
  Company Number: PHHY2010US79927

PATIENT
  Sex: Male

DRUGS (1)
  1. EXJADE [Suspect]
     Dosage: 250 MG, UNK
     Dates: start: 20060224, end: 20060331

REACTIONS (4)
  - CARDIAC DISORDER [None]
  - DEATH [None]
  - PNEUMONIA [None]
  - RENAL DISORDER [None]
